FAERS Safety Report 8130044-8 (Version None)
Quarter: 2012Q1

REPORT INFORMATION
  Report Type: 
  Country: None (occurrence: None)
  Receive Date: 20120210
  Receipt Date: 20120206
  Transmission Date: 20120608
  Serious: Yes (Death, Hospitalization, Other)
  Sender: FDA-Public Use
  Company Number: US-PFIZER INC-2011310494

PATIENT
  Sex: Female

DRUGS (8)
  1. HYDROCODONE [Concomitant]
  2. REVATIO [Suspect]
     Dosage: 20 MG, 3X/DAY
     Dates: start: 20090410
  3. LANTUS [Concomitant]
  4. REVATIO [Suspect]
     Indication: PULMONARY HYPERTENSION
     Dosage: 20 MG, 3X/DAY
     Route: 048
     Dates: start: 20080301, end: 20110101
  5. CRESTOR [Concomitant]
  6. CARVEDILOL [Concomitant]
  7. CELEXA [Concomitant]
  8. ACETYLSALICYLIC ACID [Concomitant]
     Dosage: 81 MG, UNK

REACTIONS (6)
  - DEATH [None]
  - GASTROINTESTINAL HAEMORRHAGE [None]
  - BACK PAIN [None]
  - STAPHYLOCOCCAL BACTERAEMIA [None]
  - DRUG INEFFECTIVE [None]
  - ENDOCARDITIS [None]
